FAERS Safety Report 16850103 (Version 1)
Quarter: 2019Q4

REPORT INFORMATION
  Report Type: Spontaneous
  Country: US (occurrence: US)
  Receive Date: 20190925
  Receipt Date: 20190925
  Transmission Date: 20200122
  Serious: No
  Sender: FDA-Public Use
  Company Number: None

PATIENT
  Sex: Female

DRUGS (6)
  1. PREDNISONE. [Concomitant]
     Active Substance: PREDNISONE
  2. OYS SHELL [Concomitant]
  3. H.P. ACTHAR [Suspect]
     Active Substance: CORTICOTROPIN
     Indication: ULCERATIVE KERATITIS
     Dosage: ?          OTHER FREQUENCY:Q48H-Q72H;?
     Route: 058
     Dates: start: 20190820
  4. HYDROCHLOROT [Concomitant]
     Active Substance: HYDROCHLOROTHIAZIDE
  5. VITAMIN D3 [Concomitant]
     Active Substance: CHOLECALCIFEROL
  6. NIFEDIPINE. [Concomitant]
     Active Substance: NIFEDIPINE

REACTIONS (1)
  - Swelling [None]
